FAERS Safety Report 7660215-6 (Version None)
Quarter: 2011Q3

REPORT INFORMATION
  Report Type: 
  Country: None (occurrence: None)
  Receive Date: 20110805
  Receipt Date: 20110802
  Transmission Date: 20111222
  Serious: Yes (Life-Threatening, Other)
  Sender: FDA-Public Use
  Company Number: PHHY2011AU41959

PATIENT
  Sex: Female

DRUGS (8)
  1. LEVLEN 28 [Concomitant]
  2. FERRO-GRADUMET                          /AUS/ [Concomitant]
  3. BENZTROPINE MESYLATE [Concomitant]
     Dosage: 1 MG, NOCTE
  4. ESOMEPRAZOLE MAGNESIUM [Concomitant]
  5. MOVIPREP [Concomitant]
  6. CLOZAPINE [Suspect]
     Indication: SCHIZOPHRENIA
     Dosage: 300 MG,
     Route: 048
     Dates: start: 19931115, end: 20110416
  7. VALPROATE BISMUTH [Concomitant]
     Dosage: 1 G, DAILY
  8. BENEFIBER [Concomitant]

REACTIONS (3)
  - PERICARDITIS [None]
  - PERICARDIAL EFFUSION [None]
  - OESOPHAGEAL DISORDER [None]
